FAERS Safety Report 12926703 (Version 1)
Quarter: 2016Q4

REPORT INFORMATION
  Report Type: Spontaneous
  Country: US (occurrence: US)
  Receive Date: 20161108
  Receipt Date: 20161108
  Transmission Date: 20170207
  Serious: No
  Sender: FDA-Public Use
  Company Number: US-CELGENEUS-USA-2016107196

PATIENT
  Age: 68 Year
  Sex: Male
  Weight: 95.34 kg

DRUGS (4)
  1. OTEZLA [Suspect]
     Active Substance: APREMILAST
     Indication: NAIL PSORIASIS
     Dosage: 60 MILLIGRAM
     Route: 048
     Dates: start: 20160927
  2. UREA. [Concomitant]
     Active Substance: UREA
     Indication: PROPHYLAXIS
     Route: 065
  3. TESTOSTERONE. [Concomitant]
     Active Substance: TESTOSTERONE
     Indication: PRODUCT USED FOR UNKNOWN INDICATION
     Route: 041
  4. JUBLIA [Concomitant]
     Active Substance: EFINACONAZOLE
     Indication: PRODUCT USED FOR UNKNOWN INDICATION
     Route: 065

REACTIONS (2)
  - Skin fissures [Not Recovered/Not Resolved]
  - Onychomycosis [Not Recovered/Not Resolved]

NARRATIVE: CASE EVENT DATE: 201610
